FAERS Safety Report 8283663-2 (Version None)
Quarter: 2012Q2

REPORT INFORMATION
  Report Type: 
  Country: None (occurrence: None)
  Receive Date: 20120413
  Receipt Date: 20120405
  Transmission Date: 20120825
  Serious: Yes (Other)
  Sender: FDA-Public Use
  Company Number: US-FRI-1000024586

PATIENT
  Sex: Male
  Weight: 3.41 kg

DRUGS (8)
  1. VITAMIN B-12 [Concomitant]
     Indication: PREGNANCY
     Route: 064
  2. LEXAPRO [Suspect]
     Indication: CYCLOTHYMIC DISORDER
  3. ZOFRAN [Concomitant]
     Indication: NAUSEA
     Dosage: 4 MG EVERY 8 HOURS AS NEEDED
     Route: 064
  4. LEXAPRO [Suspect]
     Indication: DEPRESSION
     Dosage: 20 MG
     Route: 064
     Dates: start: 20110401, end: 20111228
  5. VITAMIN AND MINERAL PRENATAL SUPPLEMENT W/ FOLIC ACID CAP [Concomitant]
     Indication: PREGNANCY
     Route: 064
  6. FISH OIL [Concomitant]
     Indication: PREGNANCY
     Route: 064
  7. VALTREX [Concomitant]
     Indication: HERPES VIRUS INFECTION
     Dosage: 500 MG
     Route: 064
     Dates: start: 20111129, end: 20111228
  8. ZINC SULFATE [Concomitant]
     Indication: PREGNANCY
     Route: 064

REACTIONS (1)
  - SUPRAVENTRICULAR EXTRASYSTOLES [None]
